FAERS Safety Report 11508728 (Version 1)
Quarter: 2015Q3

REPORT INFORMATION
  Report Type: Spontaneous
  Country: US (occurrence: US)
  Receive Date: 20150903
  Receipt Date: 20150903
  Transmission Date: 20151125
  Serious: No
  Sender: FDA-Public Use
  Company Number: US-ELI_LILLY_AND_COMPANY-US200912002327

PATIENT
  Age: 10 Year
  Sex: Female
  Weight: 36.28 kg

DRUGS (2)
  1. HUMALOG [Suspect]
     Active Substance: INSULIN LISPRO
     Indication: DIABETES MELLITUS
     Dosage: 8 U, AS NEEDED
     Dates: start: 20091013
  2. LANTUS [Concomitant]
     Active Substance: INSULIN GLARGINE

REACTIONS (4)
  - Intentional device misuse [Recovered/Resolved]
  - Wrong technique in product usage process [Recovered/Resolved]
  - Blood glucose increased [Recovered/Resolved]
  - Incorrect dose administered [Recovered/Resolved]

NARRATIVE: CASE EVENT DATE: 200911
